FAERS Safety Report 16159299 (Version 4)
Quarter: 2019Q2

REPORT INFORMATION
  Report Type: Report from Study
  Country: US (occurrence: US)
  Receive Date: 20190404
  Receipt Date: 20190527
  Transmission Date: 20190711
  Serious: No
  Sender: FDA-Public Use
  Company Number: PHEH2019US014108

PATIENT
  Sex: Female

DRUGS (1)
  1. ENTRESTO [Suspect]
     Active Substance: SACUBITRIL\VALSARTAN
     Indication: CARDIAC FAILURE
     Route: 048

REACTIONS (7)
  - Weight increased [Unknown]
  - Dizziness [Recovering/Resolving]
  - Concomitant disease aggravated [Unknown]
  - Wrong technique in product usage process [Unknown]
  - Limb discomfort [Unknown]
  - Drug ineffective [Unknown]
  - Asthenia [Unknown]
